FAERS Safety Report 9377821 (Version 1)
Quarter: 2013Q3

REPORT INFORMATION
  Report Type: Spontaneous
  Country: US (occurrence: US)
  Receive Date: 20130701
  Receipt Date: 20130701
  Transmission Date: 20140515
  Serious: Yes (Other)
  Sender: FDA-Public Use
  Company Number: PHHY2013US066936

PATIENT
  Age: 79 Year
  Sex: Male

DRUGS (1)
  1. METHOTREXATE [Suspect]
     Indication: PSORIASIS
     Dosage: 12.5 MG, QW

REACTIONS (10)
  - Dermatitis [Recovering/Resolving]
  - Parakeratosis [Recovering/Resolving]
  - Skin erosion [Recovering/Resolving]
  - Pain [Recovering/Resolving]
  - Blister [Recovering/Resolving]
  - Thrombocytopenia [Recovering/Resolving]
  - Pancytopenia [Recovering/Resolving]
  - Eosinophil count increased [Recovering/Resolving]
  - Toxicity to various agents [Unknown]
  - Accidental overdose [Unknown]
